FAERS Safety Report 6737939-8 (Version None)
Quarter: 2010Q2

REPORT INFORMATION
  Report Type: 
  Country: None (occurrence: None)
  Receive Date: 20100524
  Receipt Date: 20100513
  Transmission Date: 20101027
  Serious: No
  Sender: FDA-Public Use
  Company Number: AR-ROCHE-692370

PATIENT
  Age: 37 Year
  Sex: Female

DRUGS (2)
  1. ROACUTAN [Suspect]
     Indication: ACNE
     Route: 048
     Dates: start: 20100223, end: 20100302
  2. ROACUTAN [Suspect]
     Route: 048
     Dates: start: 20100302, end: 20100309

REACTIONS (2)
  - ABORTION INDUCED [None]
  - NO ADVERSE EVENT [None]
